FAERS Safety Report 7760050-4 (Version None)
Quarter: 2011Q3

REPORT INFORMATION
  Report Type: 
  Country: None (occurrence: None)
  Receive Date: 20110919
  Receipt Date: 20110913
  Transmission Date: 20111222
  Serious: Yes (Hospitalization)
  Sender: FDA-Public Use
  Company Number: US-BAYER-2011-079612

PATIENT
  Age: 54 Year
  Sex: Female

DRUGS (4)
  1. NEXAVAR [Suspect]
     Dosage: 200 MG, QD
     Route: 048
     Dates: start: 20110829, end: 20110830
  2. NEXIUM [Suspect]
     Dosage: 40 MG, UNK
     Route: 048
  3. NEXAVAR [Suspect]
     Indication: SOFT TISSUE NEOPLASM
     Dosage: 400 MG, QD
     Route: 048
     Dates: start: 20110821, end: 20110829
  4. NEXAVAR [Suspect]
     Dosage: 200 MG QD
     Route: 048

REACTIONS (15)
  - VULVOVAGINAL ERYTHEMA [None]
  - ASTHENIA [None]
  - NAUSEA [None]
  - GASTRITIS [None]
  - VOMITING [None]
  - PLANTAR ERYTHEMA [None]
  - ERYTHEMA [None]
  - OESOPHAGEAL IRRITATION [None]
  - PAIN IN EXTREMITY [None]
  - BLOOD POTASSIUM DECREASED [None]
  - RASH ERYTHEMATOUS [None]
  - FEELING HOT [None]
  - VULVOVAGINAL DISCOMFORT [None]
  - VAGINAL DISCHARGE [None]
  - ABDOMINAL PAIN [None]
